FAERS Safety Report 5498488-0 (Version None)
Quarter: 2007Q4

REPORT INFORMATION
  Report Type: 
  Country: None (occurrence: None)
  Receive Date: 20071024
  Receipt Date: 20071024
  Transmission Date: 20080405
  Serious: No
  Sender: FDA-Public Use
  Company Number: None

PATIENT
  Age: 40 Year
  Sex: Male
  Weight: 100.2449 kg

DRUGS (1)
  1. ZIAC [Suspect]

REACTIONS (1)
  - ABDOMINAL DISCOMFORT [None]
